FAERS Safety Report 9381449 (Version 1)
Quarter: 2013Q3

REPORT INFORMATION
  Report Type: Report from Study
  Country: AU (occurrence: AU)
  Receive Date: 20130703
  Receipt Date: 20130703
  Transmission Date: 20140515
  Serious: Yes (Hospitalization)
  Sender: FDA-Public Use
  Company Number: AU-JNJFOC-20120300687

PATIENT
  Age: 59 Year
  Sex: Male
  Weight: 98.7 kg

DRUGS (13)
  1. CANAGLIFLOZIN [Suspect]
     Route: 048
  2. CANAGLIFLOZIN [Suspect]
     Indication: TYPE 2 DIABETES MELLITUS
     Route: 048
     Dates: start: 20110302, end: 20120305
  3. METFORMIN [Concomitant]
     Indication: HYPERGLYCAEMIA
     Dates: start: 20041115
  4. GLICLAZIDE [Concomitant]
     Indication: HYPERGLYCAEMIA
     Dates: start: 20091219
  5. PROTAPHANE [Concomitant]
     Dates: start: 20110131
  6. PROTAPHANE [Concomitant]
     Dates: start: 20100830, end: 20110131
  7. ASPIRIN [Concomitant]
     Indication: CARDIOVASCULAR EVENT PROPHYLAXIS
     Route: 048
     Dates: start: 20041115
  8. TEMAZEPAM [Concomitant]
     Indication: INSOMNIA
     Route: 048
  9. CIALIS [Concomitant]
     Indication: ERECTILE DYSFUNCTION
     Route: 048
     Dates: start: 20090427
  10. FISH OIL [Concomitant]
     Indication: DYSLIPIDAEMIA
     Route: 048
     Dates: start: 20110131
  11. VITAMIN D [Concomitant]
     Indication: VITAMIN D DEFICIENCY
     Route: 048
     Dates: start: 20100830
  12. TRANDOLAPRIL [Concomitant]
     Indication: HYPERTENSION
     Route: 048
     Dates: start: 20100830
  13. VERAPAMIL [Concomitant]
     Indication: HYPERTENSION
     Route: 048
     Dates: start: 20100830

REACTIONS (1)
  - Abdominal pain upper [Recovering/Resolving]
